FAERS Safety Report 23878271 (Version 1)
Quarter: 2024Q2

REPORT INFORMATION
  Report Type: Spontaneous
  Country: US (occurrence: None)
  Receive Date: 20240520
  Receipt Date: 20240520
  Transmission Date: 20240716
  Serious: Yes (Hospitalization)
  Sender: FDA-Public Use
  Company Number: None

PATIENT
  Age: 20 Year
  Sex: Female

DRUGS (11)
  1. CREON [Suspect]
     Active Substance: PANCRELIPASE AMYLASE\PANCRELIPASE LIPASE\PANCRELIPASE PROTEASE
     Indication: Cystic fibrosis
     Dosage: FREQ: TAKE 4 CAPSULES BY MOUTH WITH MEALS AND TAKE 1 TO 2 CAPSULES WITH SNACKS.  MAX 20 CAPSULES PER
  2. ALBUTEROL AER HFA [Concomitant]
  3. ALBUTEROL SULFATE [Concomitant]
  4. AZITHROMYCIN [Concomitant]
  5. BUDESONIDE/FORMOTEROL FUM [Concomitant]
  6. CREON CAP 24000UNT [Concomitant]
  7. CYPROHEPTADINE HCL [Concomitant]
  8. DEKAS PLUS [Concomitant]
  9. FAMOTIDINE [Concomitant]
  10. FLOVENT HFA [Concomitant]
  11. KITABIS PAK NEB 300/5ML [Concomitant]

REACTIONS (2)
  - Physical examination [None]
  - Hospitalisation [None]

NARRATIVE: CASE EVENT DATE: 20240506
